FAERS Safety Report 19742208 (Version 1)
Quarter: 2021Q3

REPORT INFORMATION
  Report Type: Spontaneous
  Country: US (occurrence: US)
  Receive Date: 20210825
  Receipt Date: 20210825
  Transmission Date: 20211014
  Serious: No
  Sender: FDA-Public Use
  Company Number: US-GLAXOSMITHKLINE-US2021176201

PATIENT
  Age: 60 Year
  Sex: Male

DRUGS (1)
  1. NUCALA [Suspect]
     Active Substance: MEPOLIZUMAB
     Indication: ASTHMA
     Dosage: 100 MG, VA
     Route: 058
     Dates: start: 20200201

REACTIONS (3)
  - Proctalgia [Not Recovered/Not Resolved]
  - Anal rash [Not Recovered/Not Resolved]
  - Anal erythema [Not Recovered/Not Resolved]

NARRATIVE: CASE EVENT DATE: 20210601
